FAERS Safety Report 8989900 (Version 1)
Quarter: 2012Q4

REPORT INFORMATION
  Report Type: 
  Country: FR (occurrence: FR)
  Receive Date: 20121228
  Receipt Date: 20121228
  Transmission Date: 20130627
  Serious: Yes (Death)
  Sender: FDA-Public Use
  Company Number: FR-SANOFI-AVENTIS-2012SA082871

PATIENT
  Age: 77 Year
  Sex: Female

DRUGS (3)
  1. FUROSEMIDE [Suspect]
     Indication: CARDIAC DISORDER NOS
     Route: 048
     Dates: start: 20120321
  2. FUROSEMIDE [Suspect]
     Indication: CARDIAC DISORDER NOS
     Route: 048
  3. LASILIX [Concomitant]
     Indication: CARDIAC DISORDER NOS
     Dosage: strength: 40mg
     Dates: end: 20120321

REACTIONS (8)
  - Death [Fatal]
  - Decreased appetite [Unknown]
  - Sleep disorder [Unknown]
  - Asthenia [Unknown]
  - Constipation [Unknown]
  - Dehydration [Unknown]
  - Rash [Unknown]
  - Nausea [Unknown]
